FAERS Safety Report 7263014-2 (Version None)
Quarter: 2011Q1

REPORT INFORMATION
  Report Type: 
  Country: None (occurrence: None)
  Receive Date: 20110130
  Receipt Date: 20101014
  Transmission Date: 20110831
  Serious: No
  Sender: FDA-Public Use
  Company Number: US-ABBOTT-10P-163-0679014-00

PATIENT
  Sex: Female
  Weight: 64.922 kg

DRUGS (4)
  1. STEROID OINTMENT [Concomitant]
     Indication: PSORIASIS
  2. FOLIC ACID [Concomitant]
     Indication: PRODUCT USED FOR UNKNOWN INDICATION
  3. UNKNOWN ANTIBIOTIC [Concomitant]
     Indication: URINARY TRACT INFECTION
     Dates: start: 20101012
  4. HUMIRA [Suspect]
     Indication: PSORIASIS
     Dates: start: 20101013

REACTIONS (2)
  - INJECTION SITE PAIN [None]
  - INJECTION SITE EXTRAVASATION [None]
